FAERS Safety Report 7349656-4 (Version None)
Quarter: 2011Q1

REPORT INFORMATION
  Report Type: 
  Country: None (occurrence: None)
  Receive Date: 20110314
  Receipt Date: 20110222
  Transmission Date: 20110831
  Serious: No
  Sender: FDA-Public Use
  Company Number: A0914902A

PATIENT
  Age: 36 Year
  Sex: Male

DRUGS (2)
  1. NYQUIL [Concomitant]
  2. AUGMENTIN '125' [Suspect]
     Indication: BRONCHITIS
     Dosage: 1000MG TWICE PER DAY
     Route: 048
     Dates: start: 20110215, end: 20110221

REACTIONS (2)
  - DRUG INEFFECTIVE [None]
  - RESPIRATORY TRACT CONGESTION [None]
